FAERS Safety Report 15782387 (Version 4)
Quarter: 2019Q2

REPORT INFORMATION
  Report Type: Report from Study
  Country: ES (occurrence: ES)
  Receive Date: 20190102
  Receipt Date: 20190529
  Transmission Date: 20190711
  Serious: Yes (Hospitalization)
  Sender: FDA-Public Use
  Company Number: ES-JNJFOC-20181229738

PATIENT
  Age: 52 Year
  Sex: Female
  Weight: 50 kg

DRUGS (12)
  1. BROMAZEPAM [Concomitant]
     Active Substance: BROMAZEPAM
     Indication: INSOMNIA
     Route: 065
     Dates: start: 20180719
  2. PARACETAMOL [Concomitant]
     Active Substance: ACETAMINOPHEN
     Indication: PHARYNGITIS
     Route: 065
     Dates: start: 20181221, end: 20181221
  3. PROPOLEO [Concomitant]
     Indication: OROPHARYNGEAL PAIN
     Route: 065
     Dates: start: 20180805
  4. USTEKINUMAB [Suspect]
     Active Substance: USTEKINUMAB
     Indication: CROHN^S DISEASE
     Route: 058
     Dates: start: 20190102
  5. FRENADOL PS [Concomitant]
     Indication: PYREXIA
     Route: 065
     Dates: start: 20181216, end: 20181220
  6. USTEKINUMAB [Suspect]
     Active Substance: USTEKINUMAB
     Indication: CROHN^S DISEASE
     Route: 058
     Dates: start: 20181003
  7. LORAZEPAM. [Concomitant]
     Active Substance: LORAZEPAM
     Indication: INSOMNIA
     Route: 065
     Dates: start: 20180906
  8. FRENADOL PS [Concomitant]
     Indication: PHARYNGITIS
     Route: 065
     Dates: start: 20181216, end: 20181220
  9. PARACETAMOL [Concomitant]
     Active Substance: ACETAMINOPHEN
     Indication: PHARYNGITIS
     Route: 065
     Dates: start: 20181217, end: 20181217
  10. PIPERACILLIN AND TAZOBACTAM [Concomitant]
     Active Substance: PIPERACILLIN SODIUM\TAZOBACTAM SODIUM
     Indication: PHARYNGITIS
     Route: 065
     Dates: start: 20181217, end: 20181217
  11. LOPERAMIDA [Concomitant]
     Indication: CROHN^S DISEASE
     Route: 065
     Dates: start: 2012
  12. USTEKINUMAB [Suspect]
     Active Substance: USTEKINUMAB
     Indication: CROHN^S DISEASE
     Route: 058
     Dates: start: 20180808

REACTIONS (1)
  - Pharyngitis [Recovered/Resolved]

NARRATIVE: CASE EVENT DATE: 20181221
